FAERS Safety Report 9580563 (Version 2)
Quarter: 2014Q2

REPORT INFORMATION
  Report Type: Spontaneous
  Country: US (occurrence: US)
  Receive Date: 20131002
  Receipt Date: 20140410
  Transmission Date: 20141212
  Serious: Yes (Hospitalization)
  Sender: FDA-Public Use
  Company Number: US-BAYER-2013-118191

PATIENT
  Age: 39 Year
  Sex: Female
  Weight: 86.17 kg

DRUGS (7)
  1. YASMIN [Suspect]
     Indication: CONTRACEPTION
     Dosage: UNK
     Dates: start: 20050126, end: 201205
  2. YASMIN [Suspect]
     Indication: ACNE
  3. OCELLA [Suspect]
     Indication: ACNE
     Dosage: UNK
     Dates: start: 200501, end: 201205
  4. OCELLA [Suspect]
     Indication: CONTRACEPTION
  5. SYNTHROID [Concomitant]
     Dosage: 100 ?G, DAILY
     Dates: start: 2003
  6. AZITHROMYCIN [Concomitant]
     Dosage: 250 MG, UNK
     Dates: start: 201202
  7. NAPROXEN SODIUM [Concomitant]
     Dosage: 550 MG, UNK

REACTIONS (12)
  - Pulmonary embolism [None]
  - Pulmonary infarction [None]
  - Haematuria [None]
  - Injury [None]
  - Pain [None]
  - Fear of disease [None]
  - Emotional distress [None]
  - Anhedonia [None]
  - Pain [None]
  - Mental disorder [None]
  - Anxiety [None]
  - Fear [None]
